FAERS Safety Report 4268787-9 (Version None)
Quarter: 2004Q1

REPORT INFORMATION
  Report Type: 
  Country: None (occurrence: None)
  Receive Date: 20040108
  Receipt Date: 20040106
  Transmission Date: 20041129
  Serious: Yes (Death)
  Sender: FDA-Public Use
  Company Number: MK200312-0107-1

PATIENT
  Age: 62 Year
  Sex: Male

DRUGS (4)
  1. OPTIRAY 320 [Suspect]
     Indication: COMPUTERISED TOMOGRAM
     Dosage: 120 CC, IV, ONCE
     Route: 042
     Dates: start: 20031126, end: 20031126
  2. BENADRYL [Concomitant]
  3. PREDNISONE [Concomitant]
  4. PEPCID [Concomitant]

REACTIONS (5)
  - CARDIAC ARREST [None]
  - CONTRAST MEDIA REACTION [None]
  - CORONARY ARTERY DISEASE [None]
  - PULMONARY EMBOLISM [None]
  - RESPIRATORY FAILURE [None]
